FAERS Safety Report 5954085 (Version 4)
Quarter: 2017Q1

REPORT INFORMATION
  Report Type: Spontaneous
  Country: JP (occurrence: JP)
  Receive Date: 20060103
  Receipt Date: 20170207
  Transmission Date: 20170429
  Serious: Yes (Death, Other)
  Sender: FDA-Public Use
  Company Number: JP-BRISTOL-MYERS SQUIBB COMPANY-13224688

PATIENT
  Age: 36 Year
  Sex: Male

DRUGS (12)
  1. VEPESID [Suspect]
     Active Substance: ETOPOSIDE
     Indication: TESTIS CANCER
     Dosage: 1500 MG/M2, UNK
     Route: 041
     Dates: start: 20000608, end: 20020119
  2. TAXOL [Suspect]
     Active Substance: PACLITAXEL
     Indication: TESTICULAR MASS
     Dosage: 175 MG/M2, UNK
     Route: 042
     Dates: start: 20010727, end: 20031215
  3. METHOTREXATE. [Concomitant]
     Active Substance: METHOTREXATE
     Indication: TESTICULAR MASS
     Dosage: UNK
     Route: 065
     Dates: start: 20010425
  4. IFOSFAMIDE. [Suspect]
     Active Substance: IFOSFAMIDE
     Indication: TESTIS CANCER
     Dosage: 7.5 MG/M2, UNK
     Route: 041
     Dates: start: 20000724, end: 20031215
  5. GEMZAR [Concomitant]
     Active Substance: GEMCITABINE HYDROCHLORIDE
     Indication: TESTICULAR MASS
     Route: 065
  6. IRINOTECAN HCL [Concomitant]
     Active Substance: IRINOTECAN HYDROCHLORIDE
     Indication: TESTICULAR MASS
     Dosage: UNK
     Route: 065
     Dates: start: 20010727, end: 20031215
  7. BRIPLATIN [Suspect]
     Active Substance: CISPLATIN
     Indication: TESTIS CANCER
     Dosage: 100 MG/M2, UNK
     Route: 041
     Dates: start: 20000608, end: 20031215
  8. PARAPLATIN [Suspect]
     Active Substance: CARBOPLATIN
     Indication: TESTICULAR MASS
     Dosage: 1250 MG/M2, UNK
     Route: 042
     Dates: start: 20000918, end: 20001016
  9. TAXOTERE [Concomitant]
     Active Substance: DOCETAXEL
     Indication: TESTICULAR MASS
     Dosage: UNK
     Route: 065
     Dates: start: 20020404
  10. COSMEGEN [Concomitant]
     Active Substance: DACTINOMYCIN
     Indication: TESTICULAR MASS
     Dosage: UNK
     Route: 065
     Dates: start: 20010424
  11. AQUPLA [Concomitant]
     Active Substance: NEDAPLATIN
     Indication: PRODUCT USED FOR UNKNOWN INDICATION
     Dosage: 190 MG/M2, UNK
     Route: 065
     Dates: start: 20040510, end: 20041018
  12. BLEOMYCIN SULFATE [Concomitant]
     Active Substance: BLEOMYCIN SULFATE
     Indication: PRODUCT USED FOR UNKNOWN INDICATION
     Dosage: UNK
     Route: 065
     Dates: start: 20000608, end: 20010208

REACTIONS (3)
  - Acute myeloid leukaemia [Fatal]
  - Myelodysplastic syndrome transformation [Unknown]
  - Second primary malignancy [Unknown]

NARRATIVE: CASE EVENT DATE: 20041115
